FAERS Safety Report 11754959 (Version 1)
Quarter: 2015Q4

REPORT INFORMATION
  Report Type: Spontaneous
  Country: US (occurrence: US)
  Receive Date: 20151119
  Receipt Date: 20151119
  Transmission Date: 20160304
  Serious: Yes (Other)
  Sender: FDA-Public Use
  Company Number: PHEH2015US023112

PATIENT
  Age: 10 Month
  Sex: Female

DRUGS (1)
  1. TRILEPTAL [Suspect]
     Active Substance: OXCARBAZEPINE
     Indication: COMPLEX PARTIAL SEIZURES
     Dosage: UNK
     Route: 065

REACTIONS (1)
  - Seizure [Unknown]
